FAERS Safety Report 6381009-8 (Version None)
Quarter: 2009Q3

REPORT INFORMATION
  Report Type: 
  Country: None (occurrence: None)
  Receive Date: 20090929
  Receipt Date: 20090922
  Transmission Date: 20100115
  Serious: Yes (Hospitalization)
  Sender: FDA-Public Use
  Company Number: NL-ABBOTT-09P-114-0593672-00

PATIENT
  Sex: Male

DRUGS (6)
  1. HUMIRA [Suspect]
     Indication: ANKYLOSING SPONDYLITIS
     Route: 058
     Dates: start: 20080801, end: 20090701
  2. HUMIRA [Suspect]
     Dates: start: 20090821
  3. NEBUTAN [Concomitant]
     Indication: ANKYLOSING SPONDYLITIS
     Route: 048
  4. NEXIUM [Concomitant]
     Indication: PROPHYLAXIS AGAINST GASTROINTESTINAL ULCER
     Route: 048
  5. SALDIAR [Concomitant]
     Indication: ANKYLOSING SPONDYLITIS
  6. PREDNISON [Concomitant]
     Indication: POLYMYOSITIS
     Route: 048
     Dates: start: 20090824

REACTIONS (2)
  - ANKYLOSING SPONDYLITIS [None]
  - POLYMYOSITIS [None]
